FAERS Safety Report 14469418 (Version 1)
Quarter: 2018Q1

REPORT INFORMATION
  Report Type: Other
  Country: US (occurrence: US)
  Receive Date: 20180131
  Receipt Date: 20180131
  Transmission Date: 20180509
  Serious: No
  Sender: FDA-Public Use
  Company Number: US-ACORDA-ACO_140546_2017

PATIENT
  Age: 50 Year
  Sex: Male
  Weight: 78.91 kg

DRUGS (5)
  1. AMPYRA [Suspect]
     Active Substance: DALFAMPRIDINE
     Indication: MULTIPLE SCLEROSIS
     Dosage: 10 MG, BID
     Route: 048
     Dates: start: 20170526
  2. VITAMIN D3 [Concomitant]
     Active Substance: CHOLECALCIFEROL
     Indication: VITAMIN D DEFICIENCY
     Dosage: 5000 IU, BID
     Route: 048
     Dates: start: 20170710
  3. TAMSULOSIN [Concomitant]
     Active Substance: TAMSULOSIN
     Indication: URINARY TRACT OBSTRUCTION
     Dosage: 0.4 MG, QD
     Route: 048
     Dates: start: 20170526
  4. AMPYRA [Suspect]
     Active Substance: DALFAMPRIDINE
     Indication: GAIT DISTURBANCE
     Dosage: 10 MG, Q 12 HRS
     Route: 048
     Dates: start: 20170526
  5. TYSABRI [Suspect]
     Active Substance: NATALIZUMAB
     Indication: MULTIPLE SCLEROSIS
     Dosage: 300 MG, MONTHLY
     Route: 042
     Dates: start: 20170525

REACTIONS (5)
  - Joint injury [Not Recovered/Not Resolved]
  - Fall [Not Recovered/Not Resolved]
  - Therapy cessation [Not Recovered/Not Resolved]
  - Multiple sclerosis [Not Recovered/Not Resolved]
  - Fatigue [Not Recovered/Not Resolved]

NARRATIVE: CASE EVENT DATE: 201707
